FAERS Safety Report 5866845-6 (Version None)
Quarter: 2008Q3

REPORT INFORMATION
  Report Type: 
  Country: None (occurrence: None)
  Receive Date: 20080828
  Receipt Date: 20080828
  Transmission Date: 20090109
  Serious: No
  Sender: FDA-Public Use
  Company Number: None

PATIENT
  Sex: Female
  Weight: 82.5547 kg

DRUGS (1)
  1. DIVALPROEX EC 250MG / APOTEX [Suspect]
     Indication: CONVULSION
     Dosage: 250MG ONE PILL 3XDAILY ORAL
     Route: 048
     Dates: start: 20080822, end: 20080824

REACTIONS (5)
  - ATAXIA [None]
  - DYSPNOEA [None]
  - HEADACHE [None]
  - PRURITUS [None]
  - URTICARIA [None]
